FAERS Safety Report 8094712-9 (Version None)
Quarter: 2012Q1

REPORT INFORMATION
  Report Type: 
  Country: None (occurrence: None)
  Receive Date: 20120129
  Receipt Date: 20111220
  Transmission Date: 20120608
  Serious: No
  Sender: FDA-Public Use
  Company Number: US-ABBOTT-11P-163-0885353-00

PATIENT
  Sex: Male
  Weight: 49.94 kg

DRUGS (2)
  1. HUMIRA [Suspect]
     Route: 058
     Dates: start: 20110801, end: 20111001
  2. HUMIRA [Suspect]
     Indication: CROHN'S DISEASE
     Route: 058
     Dates: start: 20100101, end: 20110801

REACTIONS (5)
  - DECREASED APPETITE [None]
  - PSORIASIS [None]
  - SKIN EXFOLIATION [None]
  - DRUG INEFFECTIVE [None]
  - PRURITUS [None]
